FAERS Safety Report 11111159 (Version 1)
Quarter: 2015Q2

REPORT INFORMATION
  Report Type: Spontaneous
  Country: US (occurrence: US)
  Receive Date: 20150513
  Receipt Date: 20150513
  Transmission Date: 20150821
  Serious: Yes (Hospitalization)
  Sender: FDA-Public Use
  Company Number: US-SA-2015SA062909

PATIENT
  Age: 40 Year
  Sex: Female
  Weight: 108.86 kg

DRUGS (1)
  1. FABRAZYME [Suspect]
     Active Substance: AGALSIDASE BETA
     Indication: FABRY^S DISEASE
     Route: 041
     Dates: start: 20150430

REACTIONS (2)
  - Visual field defect [Unknown]
  - Ocular vascular disorder [Unknown]

NARRATIVE: CASE EVENT DATE: 20150430
